FAERS Safety Report 17840472 (Version 1)
Quarter: 2020Q2

REPORT INFORMATION
  Report Type: Spontaneous
  Country: US (occurrence: US)
  Receive Date: 20200529
  Receipt Date: 20200529
  Transmission Date: 20200714
  Serious: No
  Sender: FDA-Public Use
  Company Number: US-ACCORD-166720

PATIENT
  Age: 32 Year
  Sex: Male
  Weight: 83.91 kg

DRUGS (1)
  1. CLONAZEPAM ACCORD [Suspect]
     Active Substance: CLONAZEPAM
     Indication: PRODUCT USED FOR UNKNOWN INDICATION
     Dosage: STRENGTH: 1 MG?PRN?BATCH NUMBER: K0614 OR 10-2708

REACTIONS (4)
  - Irritability [Unknown]
  - Insomnia [Unknown]
  - Therapeutic product effect incomplete [Unknown]
  - Anxiety [Unknown]
